FAERS Safety Report 5912910-4 (Version None)
Quarter: 2008Q4

REPORT INFORMATION
  Report Type: 
  Country: None (occurrence: None)
  Receive Date: 20081006
  Receipt Date: 20080929
  Transmission Date: 20090506
  Serious: Yes (Other)
  Sender: FDA-Public Use
  Company Number: 2008014976

PATIENT
  Sex: Female

DRUGS (1)
  1. ZYRTEC [Suspect]
     Dosage: UNSPECIFIED, ORAL
     Route: 048

REACTIONS (2)
  - DRUG INEFFECTIVE [None]
  - POOR QUALITY DRUG ADMINISTERED [None]
